FAERS Safety Report 21057094 (Version 1)
Quarter: 2022Q3

REPORT INFORMATION
  Report Type: Spontaneous
  Country: GB (occurrence: GB)
  Receive Date: 20220708
  Receipt Date: 20220708
  Transmission Date: 20221026
  Serious: Yes (Other)
  Sender: FDA-Public Use
  Company Number: GB-002147023-NVSC2022GB099588

PATIENT
  Age: 43 Year
  Sex: Female

DRUGS (15)
  1. SIMPONI [Suspect]
     Active Substance: GOLIMUMAB
     Indication: Product used for unknown indication
     Route: 058
  2. REMICADE [Suspect]
     Active Substance: INFLIXIMAB
     Indication: Product used for unknown indication
     Route: 041
  3. ADALIMUMAB [Suspect]
     Active Substance: ADALIMUMAB
     Indication: Ankylosing spondylitis
     Dates: start: 201203
  4. AZATHIOPRINE [Suspect]
     Active Substance: AZATHIOPRINE
  5. CYCLOSPORINE [Suspect]
     Active Substance: CYCLOSPORINE
     Dates: start: 2017
  6. CERTOLIZUMAB [Suspect]
     Active Substance: CERTOLIZUMAB
     Dates: start: 2018
  7. IXEKIZUMAB [Suspect]
     Active Substance: IXEKIZUMAB
  8. METHOTREXATE [Suspect]
     Active Substance: METHOTREXATE
     Dates: start: 2017
  9. SECUKINUMAB [Suspect]
     Active Substance: SECUKINUMAB
     Dates: start: 2017
  10. SECUKINUMAB [Suspect]
     Active Substance: SECUKINUMAB
     Dates: start: 2016
  11. APREMILAST [Concomitant]
     Active Substance: APREMILAST
  12. ANTHRALIN [Concomitant]
     Active Substance: ANTHRALIN
  13. DOVONEX [Concomitant]
     Active Substance: CALCIPOTRIENE
  14. PREDNISOLONE [Concomitant]
     Active Substance: PREDNISOLONE
     Route: 048
     Dates: start: 2017
  15. PREDNISOLONE [Concomitant]
     Active Substance: PREDNISOLONE
     Route: 048
     Dates: start: 2017

REACTIONS (15)
  - Uveitis [Unknown]
  - Visual impairment [Unknown]
  - Sinusitis [Unknown]
  - Psoriasis [Unknown]
  - Therapeutic response decreased [Unknown]
  - C-reactive protein increased [Unknown]
  - Cough [Unknown]
  - Therapy non-responder [Unknown]
  - Osteoarthritis [Unknown]
  - Headache [Unknown]
  - Infection [Unknown]
  - Arthropathy [Unknown]
  - Skin disorder [Unknown]
  - Nausea [Unknown]
  - Double stranded DNA antibody [Unknown]

NARRATIVE: CASE EVENT DATE: 20190101
